FAERS Safety Report 6875662-X (Version None)
Quarter: 2010Q3

REPORT INFORMATION
  Report Type: 
  Country: None (occurrence: None)
  Receive Date: 20100727
  Receipt Date: 20070919
  Transmission Date: 20110219
  Serious: Yes (Death, Hospitalization, Other)
  Sender: FDA-Public Use
  Company Number: US-PFIZER INC-2006122025

PATIENT
  Sex: Male
  Weight: 131.5 kg

DRUGS (2)
  1. CELEBREX [Suspect]
     Indication: PAIN
     Dates: start: 20010807, end: 20020321
  2. VIOXX [Suspect]
     Indication: BACK PAIN
     Dates: start: 20010522, end: 20020321

REACTIONS (1)
  - MYOCARDIAL INFARCTION [None]
